FAERS Safety Report 12968492 (Version 1)
Quarter: 2016Q4

REPORT INFORMATION
  Report Type: Spontaneous
  Country: JP (occurrence: JP)
  Receive Date: 20161123
  Receipt Date: 20161123
  Transmission Date: 20170207
  Serious: Yes (Hospitalization, Other)
  Sender: FDA-Public Use
  Company Number: JP-BAYER-2016-220878

PATIENT
  Sex: Male
  Weight: .58 kg

DRUGS (3)
  1. ACETYLSALICYLIC ACID({=100 MG) [Suspect]
     Active Substance: ASPIRIN
     Dosage: UNK
     Route: 064
  2. PREDNISOLONE. [Concomitant]
     Active Substance: PREDNISOLONE
     Route: 064
  3. HEPARIN [Concomitant]
     Active Substance: HEPARIN SODIUM
     Dosage: UNK
     Route: 064

REACTIONS (5)
  - Foetal heart rate deceleration abnormality [None]
  - Foetal growth restriction [None]
  - Foetal exposure during pregnancy [Recovered/Resolved]
  - Low birth weight baby [None]
  - Premature baby [None]
